FAERS Safety Report 15227542 (Version 2)
Quarter: 2018Q3

REPORT INFORMATION
  Report Type: Spontaneous
  Country: BR (occurrence: BR)
  Receive Date: 20180801
  Receipt Date: 20180817
  Transmission Date: 20181010
  Serious: Yes (Hospitalization)
  Sender: FDA-Public Use
  Company Number: BR-SA-2018SA206655

PATIENT
  Age: 33 Year
  Sex: Female

DRUGS (4)
  1. TRAYENTA [Concomitant]
     Active Substance: LINAGLIPTIN
     Indication: TYPE 2 DIABETES MELLITUS
  2. LYXUMIA [Suspect]
     Active Substance: LIXISENATIDE
     Indication: TYPE 2 DIABETES MELLITUS
     Dosage: 10/20 IN THE FIRST MONTH
     Route: 065
  3. AZUKON [Concomitant]
     Active Substance: GLICLAZIDE
     Indication: TYPE 2 DIABETES MELLITUS
  4. METFORMIN HYDROCHLORIDE. [Suspect]
     Active Substance: METFORMIN HYDROCHLORIDE
     Indication: TYPE 2 DIABETES MELLITUS
     Dosage: 500 DF, BID
     Route: 065

REACTIONS (5)
  - Hospitalisation [Unknown]
  - Ill-defined disorder [Unknown]
  - Weight decreased [Unknown]
  - Glycosylated haemoglobin increased [Unknown]
  - Drug ineffective [Unknown]

NARRATIVE: CASE EVENT DATE: 20150308
